FAERS Safety Report 17907906 (Version 1)
Quarter: 2020Q2

REPORT INFORMATION
  Report Type: Spontaneous
  Country: US (occurrence: US)
  Receive Date: 20200617
  Receipt Date: 20200617
  Transmission Date: 20200714
  Serious: Yes (Other)
  Sender: FDA-Public Use
  Company Number: US-FARMAPROD-202003-0392

PATIENT
  Age: 60 Year
  Sex: Female

DRUGS (2)
  1. CONTACT BANDAGE [Concomitant]
  2. OXERVATE [Suspect]
     Active Substance: CENEGERMIN-BKBJ
     Indication: NEUROTROPHIC KERATOPATHY
     Route: 047
     Dates: start: 20200310, end: 2020

REACTIONS (2)
  - Product administration error [Unknown]
  - Retinal tear [Unknown]

NARRATIVE: CASE EVENT DATE: 20200323
